FAERS Safety Report 6306971-0 (Version None)
Quarter: 2009Q3

REPORT INFORMATION
  Report Type: 
  Country: None (occurrence: None)
  Receive Date: 20090812
  Receipt Date: 20090803
  Transmission Date: 20100115
  Serious: Yes (Hospitalization)
  Sender: FDA-Public Use
  Company Number: US-CELGENEUS-163-C5013-09080073

PATIENT
  Age: 73 Year
  Sex: Male

DRUGS (2)
  1. CC-5013 [Suspect]
     Indication: MULTIPLE MYELOMA
     Route: 048
     Dates: start: 20060329, end: 20090609
  2. DEXAMETHASONE [Suspect]
     Indication: MULTIPLE MYELOMA
     Route: 048
     Dates: start: 20060329

REACTIONS (4)
  - ACUTE LYMPHOCYTIC LEUKAEMIA [None]
  - BLOOD BLISTER [None]
  - EPISTAXIS [None]
  - PETECHIAE [None]
